FAERS Safety Report 18683754 (Version 4)
Quarter: 2021Q1

REPORT INFORMATION
  Report Type: Other
  Country: US (occurrence: US)
  Receive Date: 20201230
  Receipt Date: 20210215
  Transmission Date: 20210419
  Serious: Yes (Hospitalization, Other)
  Sender: FDA-Public Use
  Company Number: US-ROCHE-2736846

PATIENT
  Age: 59 Year
  Sex: Female
  Weight: 76.27 kg

DRUGS (14)
  1. BACLOFEN. [Concomitant]
     Active Substance: BACLOFEN
     Route: 048
     Dates: start: 201908
  2. ATORVASTATIN [Concomitant]
     Active Substance: ATORVASTATIN
     Route: 048
  3. NORVASC [Concomitant]
     Active Substance: AMLODIPINE BESYLATE
     Indication: HYPERTENSION
     Route: 048
  4. METOPROLOL. [Concomitant]
     Active Substance: METOPROLOL
     Indication: HYPERTENSION
     Route: 048
  5. SPIRONOLACTONE. [Concomitant]
     Active Substance: SPIRONOLACTONE
     Route: 048
     Dates: start: 201908
  6. NORCO [Concomitant]
     Active Substance: ACETAMINOPHEN\HYDROCODONE BITARTRATE
     Indication: PAIN
     Dosage: ONE IN MORNING AND ONE AT NIGHT
     Route: 048
     Dates: start: 2015
  7. BUPROPION HYDROCHLORIDE SR [Concomitant]
     Active Substance: BUPROPION HYDROCHLORIDE
     Indication: DEPRESSION
     Route: 048
  8. OCREVUS [Suspect]
     Active Substance: OCRELIZUMAB
     Indication: MULTIPLE SCLEROSIS
     Dosage: 300 MG ON DAY 1 AND 15, THEN 600 MG ONCE IN 6 MONTHS?ON 12/FEB/2020, 22/JUL/2020 AND 26/JAN/2021, RE
     Route: 042
     Dates: start: 20200127
  9. GABAPENTIN. [Concomitant]
     Active Substance: GABAPENTIN
     Indication: NEURALGIA
     Route: 048
  10. GABAPENTIN. [Concomitant]
     Active Substance: GABAPENTIN
     Route: 048
     Dates: start: 2017
  11. MECLIZINE [Concomitant]
     Active Substance: MECLIZINE HYDROCHLORIDE
     Indication: VERTIGO
     Route: 048
  12. XIIDRA [Concomitant]
     Active Substance: LIFITEGRAST
     Dosage: ONE DROP TO BOTH EYES IN MORNING AND AT NIGHT
     Route: 047
  13. DEXAMETHASONE. [Concomitant]
     Active Substance: DEXAMETHASONE
     Indication: HYPERTENSION
     Dosage: FOR 9 DAYS
     Route: 048
     Dates: start: 20201213
  14. AZITHROMYCIN ANHYDROUS. [Concomitant]
     Active Substance: AZITHROMYCIN ANHYDROUS
     Indication: PNEUMONIA
     Dosage: TAKE FOR 4 DAYS
     Route: 048
     Dates: start: 20201213, end: 20201216

REACTIONS (10)
  - Facial bones fracture [Recovered/Resolved]
  - Disturbance in attention [Unknown]
  - Speech disorder [Unknown]
  - Weight decreased [Recovered/Resolved]
  - COVID-19 pneumonia [Recovered/Resolved]
  - Diarrhoea [Unknown]
  - Multiple sclerosis [Unknown]
  - Amnesia [Unknown]
  - Upper respiratory tract congestion [Not Recovered/Not Resolved]
  - Fatigue [Not Recovered/Not Resolved]

NARRATIVE: CASE EVENT DATE: 202003
